FAERS Safety Report 16692232 (Version 1)
Quarter: 2019Q3

REPORT INFORMATION
  Report Type: Spontaneous
  Country: FR (occurrence: FR)
  Receive Date: 20190812
  Receipt Date: 20190812
  Transmission Date: 20191004
  Serious: Yes (Death, Hospitalization, Other)
  Sender: FDA-Public Use
  Company Number: FR-OTSUKA-2019_029149

PATIENT
  Age: 2 Year
  Sex: Male

DRUGS (6)
  1. BUSULFAN. [Suspect]
     Active Substance: BUSULFAN
     Indication: BONE MARROW CONDITIONING REGIMEN
     Dosage: 4 DAILY DOSES FROM DAY -8 TO DAY -5
     Route: 042
  2. BUSULFAN. [Suspect]
     Active Substance: BUSULFAN
     Indication: COMBINED IMMUNODEFICIENCY
  3. RITUXIMAB. [Suspect]
     Active Substance: RITUXIMAB
     Indication: PROPHYLAXIS
     Dosage: 375 MG/M2, QD (1/DAY), ON DAY-12
     Route: 065
  4. FLUDARABINE [Suspect]
     Active Substance: FLUDARABINE PHOSPHATE
     Indication: COMBINED IMMUNODEFICIENCY
  5. FLUDARABINE [Suspect]
     Active Substance: FLUDARABINE PHOSPHATE
     Indication: BONE MARROW CONDITIONING REGIMEN
     Dosage: 40 MG/M2/DAY FROM DAYS -6 TO -2
     Route: 065
  6. ALEMTUZUMAB [Suspect]
     Active Substance: ALEMTUZUMAB
     Indication: PROPHYLAXIS
     Dosage: 0.5 MG/KG, UNK
     Route: 065

REACTIONS (5)
  - Cytomegalovirus infection [Unknown]
  - Transplant failure [Unknown]
  - Respiratory syncytial virus infection [Unknown]
  - Acute respiratory distress syndrome [Fatal]
  - Adenovirus infection [Unknown]
